FAERS Safety Report 6720519-8 (Version None)
Quarter: 2010Q2

REPORT INFORMATION
  Report Type: 
  Country: None (occurrence: None)
  Receive Date: 20100506
  Receipt Date: 20100422
  Transmission Date: 20101027
  Serious: Yes (Hospitalization, Other)
  Sender: FDA-Public Use
  Company Number: 167-20484-09090699

PATIENT
  Sex: Male
  Weight: 1.66 kg

DRUGS (5)
  1. INNOHEP [Suspect]
     Indication: DRUG USE FOR UNKNOWN INDICATION
     Dosage: TRANSPLACENTAL, TRANSMAMMARY
     Dates: start: 20010521, end: 20011129
  2. INNOHEP [Suspect]
     Indication: DRUG USE FOR UNKNOWN INDICATION
     Dosage: TRANSPLACENTAL, TRANSMAMMARY
     Dates: start: 20011129, end: 20020101
  3. ERYTHROMYCIN [Concomitant]
  4. BETAMETHASONE [Concomitant]
  5. MORPHINE [Concomitant]

REACTIONS (4)
  - CAESAREAN SECTION [None]
  - MATERNAL DRUGS AFFECTING FOETUS [None]
  - PREMATURE BABY [None]
  - SMALL FOR DATES BABY [None]
